FAERS Safety Report 9640158 (Version 1)
Quarter: 2013Q4

REPORT INFORMATION
  Report Type: Spontaneous
  Country: US (occurrence: US)
  Receive Date: 20131023
  Receipt Date: 20131023
  Transmission Date: 20140711
  Serious: No
  Sender: FDA-Public Use
  Company Number: US-PFIZER INC-2013299958

PATIENT
  Age: 74 Year
  Sex: Male

DRUGS (2)
  1. GEMCITABINE HYDROCHLORIDE [Suspect]
     Indication: RENAL CELL CARCINOMA
     Dosage: UNK
  2. BEVACIZUMAB [Suspect]
     Indication: RENAL CELL CARCINOMA

REACTIONS (2)
  - Disease progression [Unknown]
  - Renal cell carcinoma [Unknown]
